FAERS Safety Report 9198965 (Version 9)
Quarter: 2014Q2

REPORT INFORMATION
  Report Type: Spontaneous
  Country: US (occurrence: US)
  Receive Date: 20130329
  Receipt Date: 20140408
  Transmission Date: 20141212
  Serious: Yes (Hospitalization, Disabling, Other)
  Sender: FDA-Public Use
  Company Number: US-009507513-1303USA012757

PATIENT
  Sex: Female
  Weight: 51.25 kg

DRUGS (5)
  1. FOSAMAX [Suspect]
     Indication: OSTEOPOROSIS
     Dosage: 70 MG, QW
     Route: 048
     Dates: start: 200808
  2. ALENDRONATE SODIUM [Suspect]
     Indication: OSTEOPOROSIS
     Dosage: 70 MG, QW
     Route: 048
     Dates: start: 20080815, end: 20110427
  3. ALENDRONATE SODIUM [Suspect]
     Dosage: 35 UNK, QW
     Route: 048
  4. ACTONEL [Suspect]
     Indication: OSTEOPOROSIS
     Dosage: 70 MG, QW
     Route: 048
     Dates: start: 20070512, end: 20080214
  5. LEVETIRACETAM [Concomitant]
     Indication: CONVULSION

REACTIONS (66)
  - Femur fracture [Not Recovered/Not Resolved]
  - Open reduction of fracture [Unknown]
  - Low turnover osteopathy [Not Recovered/Not Resolved]
  - Convulsion [Not Recovered/Not Resolved]
  - Bone graft [Unknown]
  - Hip arthroplasty [Unknown]
  - Hip arthroplasty [Unknown]
  - Myocardial infarction [Unknown]
  - Pneumonia [Unknown]
  - Mitral valve incompetence [Unknown]
  - Hyponatraemia [Unknown]
  - Escherichia sepsis [Unknown]
  - Appendix disorder [Unknown]
  - Pleurisy [Unknown]
  - Urinary tract infection [Unknown]
  - Urinary tract infection [Unknown]
  - Pneumonia [Unknown]
  - Septic shock [Unknown]
  - Monoplegia [Unknown]
  - Cardiac operation [Unknown]
  - Convulsion [Unknown]
  - Myocardial infarction [Unknown]
  - Troponin increased [Unknown]
  - Femur fracture [Unknown]
  - Pain in extremity [Not Recovered/Not Resolved]
  - Appendicitis perforated [Unknown]
  - Fracture delayed union [Unknown]
  - Joint injury [Unknown]
  - Fall [Unknown]
  - Hypertension [Unknown]
  - Dyslipidaemia [Unknown]
  - Appendicectomy [Unknown]
  - Pleurisy [Unknown]
  - Urinary incontinence [Not Recovered/Not Resolved]
  - Anxiety [Unknown]
  - Platelet dysfunction [Unknown]
  - Fall [Unknown]
  - Face injury [Unknown]
  - Head injury [Unknown]
  - Therapy change [Unknown]
  - Ecchymosis [Unknown]
  - Arthritis [Unknown]
  - Medical device removal [Unknown]
  - Pulmonary mass [Unknown]
  - Ligament sprain [Unknown]
  - Stress cardiomyopathy [Unknown]
  - Cardiac failure congestive [Unknown]
  - Thyroid neoplasm [Unknown]
  - Tinnitus [Unknown]
  - Ventricular hypokinesia [Unknown]
  - Pulmonary hypertension [Unknown]
  - Coronary artery restenosis [Unknown]
  - Chest pain [Unknown]
  - Coronary arterial stent insertion [Unknown]
  - Thrombocytopenia [Unknown]
  - Leukocytosis [Unknown]
  - Glaucoma [Unknown]
  - Pneumonitis [Unknown]
  - Pulmonary congestion [Unknown]
  - Gait disturbance [Unknown]
  - Limb deformity [Unknown]
  - Contusion [Unknown]
  - Anaemia postoperative [Recovered/Resolved]
  - Malnutrition [Unknown]
  - Asymptomatic bacteriuria [Unknown]
  - Diarrhoea [Recovered/Resolved]
